FAERS Safety Report 7133006-2 (Version None)
Quarter: 2010Q4

REPORT INFORMATION
  Report Type: 
  Country: None (occurrence: None)
  Receive Date: 20101202
  Receipt Date: 20101123
  Transmission Date: 20110411
  Serious: Yes (Hospitalization)
  Sender: FDA-Public Use
  Company Number: A0765796A

PATIENT
  Age: 63 Year
  Sex: Male
  Weight: 140.5 kg

DRUGS (9)
  1. AVANDIA [Suspect]
     Indication: DIABETES MELLITUS
     Dosage: 8MG PER DAY
     Route: 048
     Dates: start: 20040701
  2. METFORMIN [Concomitant]
  3. GLYBURIDE [Concomitant]
  4. ZOCOR [Concomitant]
  5. ENALAPRIL MALEATE [Concomitant]
  6. COZAAR [Concomitant]
  7. ZOCOR [Concomitant]
  8. GLUCOPHAGE [Concomitant]
  9. PROZAC [Concomitant]

REACTIONS (2)
  - CEREBROVASCULAR ACCIDENT [None]
  - TRANSIENT ISCHAEMIC ATTACK [None]
